FAERS Safety Report 7276664-4 (Version None)
Quarter: 2011Q1

REPORT INFORMATION
  Report Type: 
  Country: None (occurrence: None)
  Receive Date: 20110204
  Receipt Date: 20110201
  Transmission Date: 20110831
  Serious: Yes (Other)
  Sender: FDA-Public Use
  Company Number: DE-AMGEN-KDL441692

PATIENT
  Age: 56 Year
  Sex: Female
  Weight: 56.7 kg

DRUGS (2)
  1. PROLIA [Suspect]
     Indication: OSTEOPOROSIS
     Dosage: 60 MG, UNK
     Route: 058
     Dates: start: 20100928
  2. CALCIUM GLUBIONATE [Concomitant]
     Dosage: UNK UNK, QD
     Route: 048
     Dates: start: 20080101

REACTIONS (4)
  - HYPERSENSITIVITY [None]
  - RASH [None]
  - EYE SWELLING [None]
  - ERYTHEMA [None]
